FAERS Safety Report 15955969 (Version 1)
Quarter: 2019Q1

REPORT INFORMATION
  Report Type: Spontaneous
  Country: US (occurrence: US)
  Receive Date: 20190213
  Receipt Date: 20190213
  Transmission Date: 20190417
  Serious: No
  Sender: FDA-Public Use
  Company Number: US-BAYER-2019-030896

PATIENT
  Age: 95 Year
  Sex: Male
  Weight: 64 kg

DRUGS (3)
  1. FORTEO [Concomitant]
     Active Substance: TERIPARATIDE
     Indication: BONE DENSITY DECREASED
  2. MIRALAX [Suspect]
     Active Substance: POLYETHYLENE GLYCOL 3350
     Indication: GASTROINTESTINAL DISORDER
     Dosage: 17 G 8 OUNCES OF WATER DOSE
     Route: 048
     Dates: end: 20190207
  3. MACULAR SHIELD AREDS 2 [Concomitant]
     Indication: MACULAR DEGENERATION

REACTIONS (2)
  - Gastrointestinal motility disorder [Unknown]
  - Drug ineffective [Unknown]
